FAERS Safety Report 7748103-8 (Version None)
Quarter: 2011Q3

REPORT INFORMATION
  Report Type: 
  Country: None (occurrence: None)
  Receive Date: 20110913
  Receipt Date: 20110819
  Transmission Date: 20111222
  Serious: No
  Sender: FDA-Public Use
  Company Number: US-ALLERGAN-1111222US

PATIENT
  Age: 43 Year
  Sex: Female

DRUGS (3)
  1. LATISSE [Suspect]
     Indication: GROWTH OF EYELASHES
     Dosage: 1 GTT, QHS
     Route: 061
     Dates: start: 20110601
  2. LATISSE [Suspect]
     Dosage: 1 GTT, QHS
     Route: 061
  3. LATISSE [Suspect]

REACTIONS (3)
  - BLEPHARITIS [None]
  - EYE PRURITUS [None]
  - ECZEMA EYELIDS [None]
